FAERS Safety Report 17925423 (Version 1)
Quarter: 2020Q2

REPORT INFORMATION
  Report Type: Spontaneous
  Country: DE (occurrence: DE)
  Receive Date: 20200623
  Receipt Date: 20200623
  Transmission Date: 20200714
  Serious: Yes (Hospitalization)
  Sender: FDA-Public Use
  Company Number: DE-TEVA-2020-DE-1789077

PATIENT
  Age: 53 Year
  Sex: Female

DRUGS (3)
  1. OPIPRAMOL [Suspect]
     Active Substance: OPIPRAMOL
     Dosage: 50 MILLIGRAM DAILY;  0-0-1-0
  2. MIRTAZAPIN [Suspect]
     Active Substance: MIRTAZAPINE
     Dosage: 15 MILLIGRAM DAILY;  0-0-1-0
  3. LEVOTHYROXIN-NATRIUM [Concomitant]
     Active Substance: LEVOTHYROXINE SODIUM
     Dosage: 125 MICROGRAM DAILY;  1-0-0-0

REACTIONS (5)
  - Abdominal pain upper [Unknown]
  - Jaundice [Unknown]
  - Urine abnormality [Unknown]
  - Diarrhoea [Unknown]
  - Pain [Unknown]
